FAERS Safety Report 21667496 (Version 1)
Quarter: 2022Q4

REPORT INFORMATION
  Report Type: Spontaneous
  Country: GB (occurrence: GB)
  Receive Date: 20221201
  Receipt Date: 20221201
  Transmission Date: 20230112
  Serious: Yes (Other)
  Sender: FDA-Public Use
  Company Number: GB-BIOGEN-2022BI01171794

PATIENT
  Sex: Female

DRUGS (1)
  1. TECFIDERA [Suspect]
     Active Substance: DIMETHYL FUMARATE
     Indication: Multiple sclerosis
     Route: 050
     Dates: start: 202205, end: 202211

REACTIONS (5)
  - Oesophageal pain [Unknown]
  - Hyperhidrosis [Unknown]
  - Insomnia [Unknown]
  - White blood cell count decreased [Unknown]
  - Flushing [Unknown]
